FAERS Safety Report 18258003 (Version 1)
Quarter: 2020Q3

REPORT INFORMATION
  Report Type: Spontaneous
  Country: GB (occurrence: GB)
  Receive Date: 20200911
  Receipt Date: 20200911
  Transmission Date: 20201103
  Serious: Yes (Hospitalization)
  Sender: FDA-Public Use
  Company Number: GB-PFIZER INC-2020348669

PATIENT
  Age: 14 Year
  Sex: Male

DRUGS (4)
  1. XANAX [Suspect]
     Active Substance: ALPRAZOLAM
     Dosage: UNK
     Route: 065
  2. GLYCERINE [Suspect]
     Active Substance: GLYCERIN
     Dosage: UNK
     Route: 065
     Dates: start: 20200818, end: 20200818
  3. IBUPROFEN. [Suspect]
     Active Substance: IBUPROFEN
     Dosage: 16 TABLETS
     Route: 065
     Dates: start: 20200818, end: 20200818
  4. BENYLIN CHESTY COUGHS NON?DROWSY [Suspect]
     Active Substance: GUAIFENESIN\LEVOMENTHOL
     Dosage: UNK
     Route: 065
     Dates: start: 20200818, end: 20200818

REACTIONS (6)
  - Off label use [Recovered/Resolved]
  - Aggression [Recovered/Resolved]
  - Overdose [Recovered/Resolved]
  - Product use issue [Recovered/Resolved]
  - Incoherent [Recovered/Resolved]
  - Dysarthria [Recovered/Resolved]

NARRATIVE: CASE EVENT DATE: 20200818
